FAERS Safety Report 8801259 (Version 3)
Quarter: 2012Q4

REPORT INFORMATION
  Report Type: 
  Country: PR (occurrence: PR)
  Receive Date: 20120921
  Receipt Date: 20121130
  Transmission Date: 20130627
  Serious: Yes (Other)
  Sender: FDA-Public Use
  Company Number: PR-ABBOTT-12P-131-0946353-00

PATIENT
  Age: 78 Year
  Sex: Male
  Weight: 47.67 kg

DRUGS (8)
  1. HUMIRA [Suspect]
     Indication: CROHN^S DISEASE
     Route: 058
     Dates: start: 201202, end: 201206
  2. HUMIRA [Suspect]
     Route: 058
     Dates: start: 201207, end: 201208
  3. HUMIRA [Suspect]
     Route: 058
     Dates: end: 201211
  4. ATENOLOL [Concomitant]
     Indication: HYPERTENSION
     Dosage: Daily
     Route: 048
  5. TWYNSTA [Concomitant]
     Indication: HYPERTENSION
     Dosage: 80/10mg daily
     Route: 048
  6. PROSCAR [Concomitant]
     Indication: PROSTATOMEGALY
     Dosage: Daily
     Route: 048
  7. VITAMIN D [Concomitant]
     Indication: VITAMIN SUPPLEMENTATION
     Dosage: 1 softgel weekly
     Route: 048
  8. RECLAST [Concomitant]
     Indication: OSTEOPOROSIS
     Dosage: Once a year
     Route: 042

REACTIONS (8)
  - Lipoma [Unknown]
  - Rash [Recovered/Resolved]
  - Rash [Recovered/Resolved]
  - Rash [Recovered/Resolved]
  - Rash [Unknown]
  - Rash [Recovered/Resolved]
  - Dermatitis contact [Unknown]
  - Tooth extraction [Unknown]
